FAERS Safety Report 18038819 (Version 2)
Quarter: 2020Q3

REPORT INFORMATION
  Report Type: Spontaneous
  Country: US (occurrence: US)
  Receive Date: 20200717
  Receipt Date: 20200915
  Transmission Date: 20201103
  Serious: No
  Sender: FDA-Public Use
  Company Number: US-ASTRAZENECA-2020SE89323

PATIENT
  Sex: Female
  Weight: 127 kg

DRUGS (3)
  1. SYMLIN [Suspect]
     Active Substance: PRAMLINTIDE ACETATE
     Indication: BLOOD GLUCOSE ABNORMAL
     Dosage: 60.0UG UNKNOWN
     Route: 058
  2. INSULIN PUMP [Concomitant]
     Active Substance: DEVICE\INSULIN NOS
  3. SYMLIN [Suspect]
     Active Substance: PRAMLINTIDE ACETATE
     Indication: BLOOD GLUCOSE ABNORMAL
     Dosage: 120.0UG UNKNOWN
     Route: 058

REACTIONS (7)
  - Blood glucose increased [Recovered/Resolved]
  - Injection site pain [Unknown]
  - Device issue [Unknown]
  - Blood glucose decreased [Recovered/Resolved]
  - Product use issue [Not Recovered/Not Resolved]
  - Glycosylated haemoglobin abnormal [Not Recovered/Not Resolved]
  - Weight decreased [Not Recovered/Not Resolved]
